FAERS Safety Report 9409737 (Version 1)
Quarter: 2013Q3

REPORT INFORMATION
  Report Type: Spontaneous
  Country: FR (occurrence: FR)
  Receive Date: 20130719
  Receipt Date: 20130719
  Transmission Date: 20140515
  Serious: Yes (Hospitalization, Other)
  Sender: FDA-Public Use
  Company Number: FR-ASTELLAS-2013EU005970

PATIENT
  Age: 53 Year
  Sex: Female
  Weight: 81 kg

DRUGS (12)
  1. PROGRAF [Suspect]
     Indication: RENAL TRANSPLANT
     Dosage: 7 MG, UNKNOWN/D
     Route: 065
  2. PROGRAF [Suspect]
     Dosage: 3.5 MG, BID
     Route: 065
  3. LANTUS [Concomitant]
     Indication: DIABETES MELLITUS
     Dosage: UNK
     Route: 058
     Dates: start: 201206
  4. NOVORAPID [Concomitant]
     Indication: DIABETES MELLITUS
     Dosage: UNK
     Route: 058
     Dates: start: 201206
  5. LASILIX                            /00032601/ [Concomitant]
     Indication: PROPHYLAXIS
     Dosage: 20 MG/ML, BID
     Route: 048
     Dates: start: 201206
  6. KARDEGIC [Concomitant]
     Indication: PROPHYLAXIS
     Dosage: 75 MG, UNKNOWN/D
     Route: 048
     Dates: start: 201206
  7. CALCIPARIN [Concomitant]
     Dosage: 9500 IU, BID
     Route: 065
  8. CELLCEPT                           /01275102/ [Concomitant]
     Dosage: 250 MG, BID
     Route: 065
  9. PLAVIX [Concomitant]
     Dosage: 150 MG, UNKNOWN/D
     Route: 065
  10. CYMEVEN                            /00784201/ [Concomitant]
     Dosage: 250 MG, BID
     Route: 065
  11. TAHOR [Concomitant]
     Dosage: 40 MG, UNKNOWN/D
     Route: 065
  12. TRIATEC                            /00116401/ [Concomitant]
     Dosage: 2.5 MG, BID
     Route: 065

REACTIONS (5)
  - Acute respiratory distress syndrome [Recovered/Resolved]
  - Acute coronary syndrome [Recovered/Resolved]
  - Atrial fibrillation [Recovered/Resolved]
  - Bacterial pyelonephritis [Unknown]
  - Cytomegalovirus infection [Recovered/Resolved]
